FAERS Safety Report 15984154 (Version 1)
Quarter: 2019Q1

REPORT INFORMATION
  Report Type: Spontaneous
  Country: US (occurrence: US)
  Receive Date: 20190219
  Receipt Date: 20190219
  Transmission Date: 20190418
  Serious: Yes (Other)
  Sender: FDA-Public Use
  Company Number: None

PATIENT
  Age: 5 Year
  Sex: Male
  Weight: 17.55 kg

DRUGS (2)
  1. AMOXICILLIN. [Concomitant]
     Active Substance: AMOXICILLIN
  2. OSELTAMIVIR PHOSPHATE. [Suspect]
     Active Substance: OSELTAMIVIR PHOSPHATE
     Indication: INFLUENZA A VIRUS TEST POSITIVE
     Dosage: ?          QUANTITY:1.5 TEASPOON(S);?
     Route: 048
     Dates: start: 20190216, end: 20190219

REACTIONS (5)
  - Suicidal ideation [None]
  - Psychotic behaviour [None]
  - Influenza [None]
  - Autism spectrum disorder [None]
  - Depression [None]

NARRATIVE: CASE EVENT DATE: 20190218
